FAERS Safety Report 9064836 (Version 1)
Quarter: 2013Q1

REPORT INFORMATION
  Report Type: Spontaneous
  Country: US (occurrence: US)
  Receive Date: 20130131
  Receipt Date: 20130131
  Transmission Date: 20140127
  Serious: No
  Sender: FDA-Public Use
  Company Number: US-ABBOTT-12P-163-1009721-00

PATIENT
  Sex: Male
  Weight: 122.58 kg

DRUGS (10)
  1. HUMIRA [Suspect]
     Indication: RHEUMATOID ARTHRITIS
     Route: 058
     Dates: start: 2006
  2. HUMIRA [Suspect]
     Indication: CROHN^S DISEASE
  3. EXFORGE [Concomitant]
     Indication: HYPERTENSION
  4. BABY ASPIRIN [Concomitant]
     Indication: CARDIAC DISORDER
     Route: 048
  5. TRILIPIX [Concomitant]
     Indication: BLOOD CHOLESTEROL INCREASED
  6. UNKNOWN MEDICATION [Concomitant]
     Indication: BIPOLAR DISORDER
  7. UNKNOWN MEDICATION [Concomitant]
     Indication: DEPRESSION
     Dosage: AT NIGHT
  8. MAGNESIUM [Concomitant]
     Indication: PRODUCT USED FOR UNKNOWN INDICATION
  9. CALCIUM [Concomitant]
     Indication: PRODUCT USED FOR UNKNOWN INDICATION
  10. VITAMIN B-12 [Concomitant]
     Indication: PRODUCT USED FOR UNKNOWN INDICATION

REACTIONS (5)
  - Muscle fatigue [Recovered/Resolved]
  - Dyspnoea [Not Recovered/Not Resolved]
  - Muscle fatigue [Recovered/Resolved]
  - Inappropriate schedule of drug administration [Unknown]
  - Hypersensitivity [Unknown]
